FAERS Safety Report 4602562-8 (Version None)
Quarter: 2005Q1

REPORT INFORMATION
  Report Type: 
  Country: None (occurrence: None)
  Receive Date: 20050307
  Receipt Date: 20050221
  Transmission Date: 20050727
  Serious: Yes (Hospitalization)
  Sender: FDA-Public Use
  Company Number: 2005034562

PATIENT
  Age: 61 Year
  Sex: Female

DRUGS (12)
  1. VIAGRA [Suspect]
     Indication: PULMONARY HYPERTENSION
     Dosage: ORAL
     Route: 048
  2. LEVOTHYRONE (LEVOTHYROXINE) [Concomitant]
  3. AMITRIPTYLINE HCL [Concomitant]
  4. CODEINE PHOSPHATE AND ACETAMINOPHEN [Concomitant]
  5. FUROSEMIDE [Concomitant]
  6. CIPROFIBRATE (CIPROFIBRATE) [Concomitant]
  7. TEMAZEPAM [Concomitant]
  8. MELOXICAM [Concomitant]
  9. NEOMYCIN [Concomitant]
  10. DIAZEPAM [Concomitant]
  11. OXYCODONE HYDROCHLORIDE (OXYCODONE HYDROCHLORIDE) [Concomitant]
  12. EPOPROSTENOL SODIUM (EPOPROSTENOL SODIUM) [Concomitant]

REACTIONS (13)
  - ABDOMINAL PAIN [None]
  - BACK PAIN [None]
  - BLOOD SODIUM INCREASED [None]
  - BUNDLE BRANCH BLOCK RIGHT [None]
  - CYANOSIS [None]
  - ELECTROCARDIOGRAM P WAVE ABNORMAL [None]
  - GAMMA-GLUTAMYLTRANSFERASE INCREASED [None]
  - HAEMOGLOBIN DECREASED [None]
  - PAIN IN EXTREMITY [None]
  - PLATELET COUNT DECREASED [None]
  - RESTLESSNESS [None]
  - THYROXINE FREE INCREASED [None]
  - URINARY RETENTION [None]
